FAERS Safety Report 25005860 (Version 2)
Quarter: 2025Q1

REPORT INFORMATION
  Report Type: Spontaneous
  Country: US (occurrence: US)
  Receive Date: 20250224
  Receipt Date: 20250304
  Transmission Date: 20250409
  Serious: No
  Sender: PFIZER
  Company Number: US-PFIZER INC-202500040913

PATIENT
  Age: 62 Year
  Sex: Female

DRUGS (1)
  1. EUCRISA [Suspect]
     Active Substance: CRISABOROLE
     Indication: Dermatitis atopic
     Dosage: APPLY SPARINGLY TO AFFECTED AREAS BID, PRN

REACTIONS (5)
  - Off label use [Unknown]
  - Product use issue [Unknown]
  - Eyelid irritation [Recovering/Resolving]
  - Eye pruritus [Not Recovered/Not Resolved]
  - Cognitive disorder [Unknown]
